FAERS Safety Report 6646426-7 (Version None)
Quarter: 2010Q1

REPORT INFORMATION
  Report Type: 
  Country: None (occurrence: None)
  Receive Date: 20100323
  Receipt Date: 20100319
  Transmission Date: 20100710
  Serious: Yes (Other)
  Sender: FDA-Public Use
  Company Number: KR-ROCHE-692070

PATIENT
  Age: 54 Year
  Sex: Female

DRUGS (2)
  1. BONIVA [Suspect]
     Indication: OSTEOPOROSIS
     Dosage: OVERDOSE
     Route: 042
     Dates: start: 20091210
  2. BONIVA [Suspect]
     Route: 042

REACTIONS (2)
  - BREAST DISCOMFORT [None]
  - OVERDOSE [None]
